FAERS Safety Report 10156662 (Version 1)
Quarter: 2014Q2

REPORT INFORMATION
  Report Type: Spontaneous
  Country: DK (occurrence: DK)
  Receive Date: 20140507
  Receipt Date: 20140507
  Transmission Date: 20141212
  Serious: Yes (Other)
  Sender: FDA-Public Use
  Company Number: DK-ELI_LILLY_AND_COMPANY-DK201404009882

PATIENT
  Age: 32 Year
  Sex: Male
  Weight: 110 kg

DRUGS (3)
  1. STRATTERA [Suspect]
     Indication: ATTENTION DEFICIT/HYPERACTIVITY DISORDER
     Dosage: 25 MG, UNKNOWN (7 DAYS)
     Route: 065
  2. STRATTERA [Suspect]
     Dosage: 40 MG, UNKNOWN (7 DAYS)
     Route: 065
  3. STRATTERA [Suspect]
     Dosage: 60 MG, QD
     Route: 048
     Dates: end: 20131219

REACTIONS (2)
  - Penis disorder [Recovered/Resolved]
  - Urinary retention [Recovered/Resolved]
